FAERS Safety Report 5151537-1 (Version None)
Quarter: 2006Q4

REPORT INFORMATION
  Report Type: 
  Country: None (occurrence: None)
  Receive Date: 20061115
  Receipt Date: 20060914
  Transmission Date: 20070319
  Serious: Yes (Other)
  Sender: FDA-Public Use
  Company Number: JP-BRACCO-BRO-010558

PATIENT
  Age: 63 Year
  Sex: Female

DRUGS (16)
  1. IOPAMIRON [Suspect]
     Indication: ANGINA PECTORIS
     Route: 042
     Dates: start: 20060804, end: 20060804
  2. IOPAMIRON [Suspect]
     Indication: COMPUTERISED TOMOGRAM
     Route: 042
     Dates: start: 20060804, end: 20060804
  3. PANALDINE [Concomitant]
     Route: 048
     Dates: end: 20060805
  4. ASPIRIN [Concomitant]
     Route: 048
     Dates: end: 20060805
  5. CYTOTEC [Concomitant]
     Route: 048
     Dates: end: 20060807
  6. PRAVASTATIN [Concomitant]
     Route: 048
     Dates: end: 20060807
  7. ANPLAG [Concomitant]
     Route: 048
  8. MAALOX FAST BLOCKER [Concomitant]
     Route: 050
  9. MUCOSTA [Concomitant]
     Route: 048
  10. ATELEC [Concomitant]
     Route: 048
  11. DIOVAN                             /01319601/ [Concomitant]
     Route: 048
  12. RESLIN [Concomitant]
     Route: 048
  13. PAXIL [Concomitant]
     Route: 048
  14. MEILAX [Concomitant]
     Route: 048
  15. LENDORMIN [Concomitant]
     Route: 048
  16. ROHYPNOL [Concomitant]
     Route: 048

REACTIONS (5)
  - DERMATITIS EXFOLIATIVE [None]
  - MALAISE [None]
  - NAUSEA [None]
  - ORAL INTAKE REDUCED [None]
  - PYREXIA [None]
